FAERS Safety Report 20380756 (Version 1)
Quarter: 2022Q1

REPORT INFORMATION
  Report Type: Spontaneous
  Country: CN (occurrence: CN)
  Receive Date: 20220127
  Receipt Date: 20220127
  Transmission Date: 20220424
  Serious: Yes (Death, Other)
  Sender: FDA-Public Use
  Company Number: CN-Blueprint Medicines Corporation-SO-CN-2022-000227

PATIENT
  Age: 58 Year
  Sex: Male

DRUGS (1)
  1. AVAPRITINIB [Suspect]
     Active Substance: AVAPRITINIB
     Indication: Gastrointestinal stromal tumour
     Route: 048
     Dates: start: 20211027, end: 20211118

REACTIONS (1)
  - Death [Fatal]

NARRATIVE: CASE EVENT DATE: 20211201
